FAERS Safety Report 20327271 (Version 3)
Quarter: 2022Q1

REPORT INFORMATION
  Report Type: Report from Study
  Country: FR (occurrence: FR)
  Receive Date: 20220112
  Receipt Date: 20220127
  Transmission Date: 20220423
  Serious: Yes (Disabling)
  Sender: FDA-Public Use
  Company Number: FR-NOVARTISPH-NVSC2022FR003734

PATIENT
  Sex: Male
  Weight: 75 kg

DRUGS (3)
  1. TABRECTA [Suspect]
     Active Substance: CAPMATINIB
     Indication: Non-small cell lung cancer
     Dosage: 800 MG, QD
     Route: 048
     Dates: start: 20211019, end: 20220103
  2. TABRECTA [Suspect]
     Active Substance: CAPMATINIB
     Dosage: 800 MG, QD
     Route: 065
     Dates: start: 20211025, end: 20220104
  3. TAGRISSO [Concomitant]
     Active Substance: OSIMERTINIB
     Indication: EGFR gene mutation
     Dosage: 800 MG, QD
     Route: 048
     Dates: start: 20201009

REACTIONS (2)
  - Pain in extremity [Recovering/Resolving]
  - Oedema peripheral [Recovering/Resolving]

NARRATIVE: CASE EVENT DATE: 20211213
